FAERS Safety Report 23354716 (Version 2)
Quarter: 2024Q1

REPORT INFORMATION
  Report Type: Spontaneous
  Country: US (occurrence: None)
  Receive Date: 20240101
  Receipt Date: 20240110
  Transmission Date: 20240409
  Serious: No
  Sender: FDA-Public Use
  Company Number: 2023A289123

PATIENT
  Age: 27836 Day
  Sex: Female

DRUGS (1)
  1. BYDUREON BCISE [Suspect]
     Active Substance: EXENATIDE
     Dosage: 2.0MG UNKNOWN
     Dates: start: 2005

REACTIONS (4)
  - Wrong technique in device usage process [Unknown]
  - Device malfunction [Unknown]
  - Needle issue [Unknown]
  - Device leakage [Unknown]

NARRATIVE: CASE EVENT DATE: 20231210
